FAERS Safety Report 6897675-4 (Version None)
Quarter: 2010Q3

REPORT INFORMATION
  Report Type: 
  Country: None (occurrence: None)
  Receive Date: 20100802
  Receipt Date: 20070630
  Transmission Date: 20110219
  Serious: No
  Sender: FDA-Public Use
  Company Number: US-PFIZER INC-2007054279

PATIENT
  Sex: Female
  Weight: 136.4 kg

DRUGS (12)
  1. LYRICA [Suspect]
     Dates: start: 20070601
  2. CYMBALTA [Concomitant]
  3. WELLBUTRIN [Concomitant]
  4. FUROSEMIDE [Concomitant]
  5. SPIRONOLACTONE [Concomitant]
  6. ALTACE [Concomitant]
  7. KLOR-CON [Concomitant]
  8. GEMFIBROZIL [Concomitant]
  9. REQUIP [Concomitant]
  10. ROZEREM [Concomitant]
  11. RASAGILINE [Concomitant]
  12. VYTORIN [Concomitant]

REACTIONS (1)
  - UNEVALUABLE EVENT [None]
